FAERS Safety Report 24724420 (Version 2)
Quarter: 2025Q1

REPORT INFORMATION
  Report Type: Spontaneous
  Country: US (occurrence: US)
  Receive Date: 20241212
  Receipt Date: 20250207
  Transmission Date: 20250409
  Serious: No
  Sender: Kenvue
  Company Number: US-KENVUE-20241105322

PATIENT
  Sex: Female

DRUGS (3)
  1. WOMENS ROGAINE UNSCENTED [Suspect]
     Active Substance: MINOXIDIL
     Indication: Alopecia
     Dosage: UNK UNK, ONCE A DAY
     Route: 061
     Dates: start: 2021, end: 2023
  2. WOMENS ROGAINE UNSCENTED [Suspect]
     Active Substance: MINOXIDIL
     Dosage: SQUIRT FROM CAN IN THE AMOUNT OF 2-3 TABLESPOON, ONCE A DAY
     Route: 061
     Dates: start: 2023, end: 20240730
  3. MENS ROGAINE EXTRA STRENGTH [Suspect]
     Active Substance: MINOXIDIL
     Indication: Alopecia
     Dosage: SQUIRT FROM CAN IN THE AMOUNT OF 2-3 TABLESPOON, ONCE A DAY
     Route: 061
     Dates: start: 20240727, end: 2024

REACTIONS (5)
  - Hair colour changes [Recovered/Resolved]
  - Product use in unapproved indication [Unknown]
  - Product use issue [Unknown]
  - Intentional product misuse [Unknown]
  - Wrong technique in product usage process [Unknown]

NARRATIVE: CASE EVENT DATE: 20210101
